FAERS Safety Report 10646060 (Version 1)
Quarter: 2014Q4

REPORT INFORMATION
  Report Type: Spontaneous
  Country: US (occurrence: None)
  Receive Date: 20141203
  Receipt Date: 20141203
  Transmission Date: 20150529
  Serious: Yes (Other)
  Sender: FDA-Public Use
  Company Number: 1329863

PATIENT
  Age: 48 Year
  Sex: Female
  Weight: 58.97 kg

DRUGS (3)
  1. DOXORUBICIN [Concomitant]
     Active Substance: DOXORUBICIN
  2. HERCEPTIN [Suspect]
     Active Substance: TRASTUZUMAB
     Indication: BREAST CANCER METASTATIC
     Dosage: 387MG, 1 IN 3 WK, INTRAVENOUS
     Route: 042
     Dates: start: 20121107, end: 20130703
  3. FASLODEX [Concomitant]
     Active Substance: FULVESTRANT

REACTIONS (1)
  - Ejection fraction decreased [None]

NARRATIVE: CASE EVENT DATE: 20130719
